FAERS Safety Report 6376768-4 (Version None)
Quarter: 2009Q3

REPORT INFORMATION
  Report Type: 
  Country: None (occurrence: None)
  Receive Date: 20090924
  Receipt Date: 20090924
  Transmission Date: 20100115
  Serious: Yes (Other)
  Sender: FDA-Public Use
  Company Number: None

PATIENT
  Age: 61 Year
  Sex: Male
  Weight: 125 kg

DRUGS (1)
  1. VANCOMYCIN [Suspect]
     Indication: CELLULITIS
     Dosage: 1.75GM Q24H IV (041)  1.75AM Q48H IV (DOSE ADJUSTED BASED ON LABS)
     Route: 042
     Dates: start: 20090813, end: 20090828

REACTIONS (5)
  - DIALYSIS [None]
  - DRUG LEVEL INCREASED [None]
  - PRODUCT CONTAMINATION [None]
  - PRODUCT QUALITY ISSUE [None]
  - RENAL FAILURE [None]
